FAERS Safety Report 5053835-9 (Version None)
Quarter: 2006Q3

REPORT INFORMATION
  Report Type: 
  Country: None (occurrence: None)
  Receive Date: 20060718
  Receipt Date: 20060710
  Transmission Date: 20061208
  Serious: Yes (Hospitalization)
  Sender: FDA-Public Use
  Company Number: FR-GLAXOSMITHKLINE-B0430527A

PATIENT
  Age: 58 Year
  Sex: Female

DRUGS (5)
  1. ZANTAC [Suspect]
     Dosage: 50MG SINGLE DOSE
     Route: 042
     Dates: start: 20060420, end: 20060420
  2. ZOPHREN [Suspect]
     Dosage: 8MG PER DAY
     Route: 048
     Dates: start: 20060420, end: 20060420
  3. POLARAMINE [Suspect]
     Dosage: 5MG SINGLE DOSE
     Route: 042
     Dates: start: 20060420, end: 20060420
  4. TAXOL [Suspect]
     Dosage: 175MG SINGLE DOSE
     Route: 042
     Dates: start: 20060420, end: 20060420
  5. CARBOPLATIN [Suspect]
     Route: 065
     Dates: start: 20060420, end: 20060420

REACTIONS (3)
  - ERYTHEMA [None]
  - HYPERSENSITIVITY [None]
  - SUFFOCATION FEELING [None]
